FAERS Safety Report 8354250-2 (Version None)
Quarter: 2012Q2

REPORT INFORMATION
  Report Type: 
  Country: None (occurrence: None)
  Receive Date: 20120511
  Receipt Date: 20110110
  Transmission Date: 20120825
  Serious: No
  Sender: FDA-Public Use
  Company Number: US-TEVA-2011000161

PATIENT
  Age: 33 Year
  Sex: Female

DRUGS (1)
  1. NUVIGIL [Suspect]
     Indication: MULTIPLE SCLEROSIS
     Dosage: 150 MILLIGRAM;
     Route: 048
     Dates: start: 20100410, end: 20100413

REACTIONS (2)
  - NECK PAIN [None]
  - FATIGUE [None]
